FAERS Safety Report 13619776 (Version 1)
Quarter: 2017Q2

REPORT INFORMATION
  Report Type: Spontaneous
  Country: None (occurrence: US)
  Receive Date: 20170606
  Receipt Date: 20170606
  Transmission Date: 20170830
  Serious: Yes (Other)
  Sender: FDA-Public Use
  Company Number: None

PATIENT
  Age: 8 Year
  Sex: Female

DRUGS (1)
  1. LUPRON [Suspect]
     Active Substance: LEUPROLIDE ACETATE
     Dosage: 11.25 MG Q3M IM
     Route: 030
     Dates: start: 20170309

REACTIONS (3)
  - Syncope [None]
  - Ear infection [None]
  - Dizziness [None]

NARRATIVE: CASE EVENT DATE: 20170407
